FAERS Safety Report 7561350-3 (Version None)
Quarter: 2011Q2

REPORT INFORMATION
  Report Type: 
  Country: None (occurrence: None)
  Receive Date: 20110621
  Receipt Date: 20101129
  Transmission Date: 20111010
  Serious: No
  Sender: FDA-Public Use
  Company Number: US-ASTRAZENECA-2010SE56789

PATIENT
  Age: 71 Year
  Sex: Female
  Weight: 100.2 kg

DRUGS (13)
  1. MORPHINE [Concomitant]
     Route: 048
  2. LORAZEPAM [Concomitant]
  3. ADVAIR DISKUS 100/50 [Concomitant]
  4. PREDNISONE TAB [Concomitant]
  5. HUMALOG [Concomitant]
     Indication: DIABETES MELLITUS
  6. DIOVAN [Concomitant]
  7. ZOCOR [Concomitant]
  8. LANTUS [Concomitant]
     Indication: DIABETES MELLITUS
  9. FUROSEMIDE [Concomitant]
  10. PULMICORT [Suspect]
     Indication: CHRONIC OBSTRUCTIVE PULMONARY DISEASE
     Route: 055
     Dates: start: 20050101
  11. NEXIUM [Concomitant]
     Route: 048
  12. ALBUTEROL SULFATE AUTOHALER [Concomitant]
     Indication: CHRONIC OBSTRUCTIVE PULMONARY DISEASE
     Route: 055
  13. SPIRIVA [Concomitant]

REACTIONS (2)
  - DYSPNOEA [None]
  - DRUG INEFFECTIVE [None]
